FAERS Safety Report 9166120 (Version 1)
Quarter: 2013Q1

REPORT INFORMATION
  Report Type: Spontaneous
  Country: DE (occurrence: None)
  Receive Date: 20130301
  Receipt Date: 20130301
  Transmission Date: 20140127
  Serious: Yes (Hospitalization)
  Sender: FDA-Public Use
  Company Number: 2013-0835

PATIENT
  Sex: Female
  Weight: 45 kg

DRUGS (2)
  1. DYSPORT (BOTULINUM TOXIN TYPE A) (BOTULINUM TOXIN TYPE A) [Suspect]
     Indication: PRODUCT USED FOR UNKNOWN INDICATION
     Dosage: NOT REPORTED (1 IN 1 CYCLE (S)), UNKNOWN
     Dates: start: 20130124, end: 20130124
  2. BACLOFEN PUMP (BACLOFEN) [Concomitant]

REACTIONS (8)
  - Lobar pneumonia [None]
  - Urinary tract infection [None]
  - Asthenia [None]
  - Diarrhoea [None]
  - Dehydration [None]
  - Pyrexia [None]
  - Gastrointestinal disorder [None]
  - Overdose [None]
